FAERS Safety Report 16179354 (Version 3)
Quarter: 2019Q3

REPORT INFORMATION
  Report Type: Spontaneous
  Country: US (occurrence: US)
  Receive Date: 20190410
  Receipt Date: 20190711
  Transmission Date: 20191004
  Serious: No
  Sender: FDA-Public Use
  Company Number: US-PFIZER INC-2019149069

PATIENT
  Age: 71 Year
  Sex: Female
  Weight: 61.23 kg

DRUGS (7)
  1. LISINOPRIL. [Concomitant]
     Active Substance: LISINOPRIL
     Dosage: 40 MG, UNK
     Dates: start: 201905
  2. METFORMIN [Concomitant]
     Active Substance: METFORMIN HYDROCHLORIDE
     Dosage: 1000 MG, 2X/DAY
     Dates: start: 201604
  3. FENOFIBRATE. [Concomitant]
     Active Substance: FENOFIBRATE
     Dosage: 54 MG, UNK
     Dates: start: 201903
  4. GABAPENTIN. [Suspect]
     Active Substance: GABAPENTIN
     Indication: PAIN IN EXTREMITY
     Dosage: 800 MG, 2X/DAY
     Dates: start: 2015
  5. GABAPENTIN. [Suspect]
     Active Substance: GABAPENTIN
     Indication: NEUROPATHY PERIPHERAL
     Dosage: 800 MG, 3X/DAY
     Route: 048
     Dates: start: 2009
  6. LEVOTHYROXIN [Concomitant]
     Active Substance: LEVOTHYROXINE
     Dosage: 88 UG, UNK
     Dates: start: 201307
  7. AMLODIPINE [Concomitant]
     Active Substance: AMLODIPINE BESYLATE
     Dosage: 5 MG, UNK
     Dates: start: 201802

REACTIONS (4)
  - Insomnia [Unknown]
  - Drug ineffective for unapproved indication [Not Recovered/Not Resolved]
  - Gait disturbance [Unknown]
  - Off label use [Not Recovered/Not Resolved]

NARRATIVE: CASE EVENT DATE: 201901
